FAERS Safety Report 20119323 (Version 3)
Quarter: 2021Q4

REPORT INFORMATION
  Report Type: Spontaneous
  Country: PL (occurrence: PL)
  Receive Date: 20211126
  Receipt Date: 20211209
  Transmission Date: 20220303
  Serious: Yes (Other)
  Sender: FDA-Public Use
  Company Number: PL-KRKA-PL2021K14528LIT

PATIENT
  Age: 73 Year
  Sex: Male

DRUGS (23)
  1. ACYCLOVIR [Suspect]
     Active Substance: ACYCLOVIR
     Indication: Prophylaxis
     Dosage: UNK
     Route: 065
     Dates: start: 201702
  2. BORTEZOMIB [Suspect]
     Active Substance: BORTEZOMIB
     Indication: Plasma cell myeloma
     Dosage: 1.3 MILLIGRAM/SQ. METER (ON DAYS 1, 4, 8, AND 11)
     Route: 065
     Dates: start: 201702, end: 201710
  3. CLOPIDOGREL [Suspect]
     Active Substance: CLOPIDOGREL BISULFATE
     Indication: Product used for unknown indication
     Dosage: 40 MILLIGRAM (ON DAYS 1?4 AND 8?11 OF 28-DAY CYCLES)
     Route: 065
     Dates: start: 201702
  4. FUROSEMIDE [Suspect]
     Active Substance: FUROSEMIDE
     Indication: Product used for unknown indication
     Dosage: UNK
     Route: 065
  5. PANTOPRAZOLE [Suspect]
     Active Substance: PANTOPRAZOLE
     Indication: Product used for unknown indication
     Dosage: UNK
     Route: 065
  6. ASPIRIN [Suspect]
     Active Substance: ASPIRIN
     Indication: Product used for unknown indication
     Dosage: UNK
     Route: 065
  7. CYCLOPHOSPHAMIDE [Suspect]
     Active Substance: CYCLOPHOSPHAMIDE
     Indication: Plasma cell myeloma
     Dosage: 500 MILLIGRAM/SQ. METER (ON DAYS 1 AND 8)
     Route: 065
     Dates: start: 201702, end: 201710
  8. DEXAMETHASONE [Suspect]
     Active Substance: DEXAMETHASONE
     Indication: Plasma cell myeloma
     Dosage: 40 MILLIGRAM (ON DAYS 1?4 AND 8?11 OF 28-DAY CYCLES)
     Route: 065
     Dates: start: 201702
  9. DEXAMETHASONE [Suspect]
     Active Substance: DEXAMETHASONE
     Dosage: 12 MILLIGRAM (ON 1?4 OF THE 28-DAY)
     Route: 065
     Dates: start: 201801, end: 201812
  10. DEXAMETHASONE [Suspect]
     Active Substance: DEXAMETHASONE
     Dosage: 20 MILLIGRAM (ON DAYS 1?4, 8?11 AND 15?18)
     Dates: start: 201802
  11. DEXAMETHASONE [Suspect]
     Active Substance: DEXAMETHASONE
     Dosage: 12 MILLIGRAM ( DAYS 1?2, 4?5, 8?9 AND 11?12)
     Route: 065
  12. ENOXAPARIN [Suspect]
     Active Substance: ENOXAPARIN
     Indication: Product used for unknown indication
     Dosage: UNK
     Route: 065
  13. IRON [Suspect]
     Active Substance: IRON
     Indication: Iron deficiency anaemia
     Dosage: UNK
     Route: 065
     Dates: start: 2020
  14. LENALIDOMIDE [Suspect]
     Active Substance: LENALIDOMIDE
     Indication: Plasma cell myeloma
     Dosage: 25 MILLIGRAM, ONCE A DAY
     Route: 065
     Dates: start: 201802
  15. LENALIDOMIDE [Suspect]
     Active Substance: LENALIDOMIDE
     Indication: Disease progression
     Dosage: 15 MILLIGRAM, ONCE A DAY
     Route: 065
     Dates: start: 201802
  16. IXAZOMIB [Suspect]
     Active Substance: IXAZOMIB
     Indication: Plasma cell myeloma
     Dosage: 4 MILLIGRAM (ON DAYS 1, 8 AND 15)
     Route: 065
  17. SPIRONOLACTONE [Suspect]
     Active Substance: SPIRONOLACTONE
     Indication: Product used for unknown indication
     Dosage: UNK
     Route: 065
  18. SULFAMETHOXAZOLE\TRIMETHOPRIM [Suspect]
     Active Substance: SULFAMETHOXAZOLE\TRIMETHOPRIM
     Indication: Prophylaxis
     Dosage: UNK
     Route: 065
     Dates: start: 201702
  19. THALIDOMIDE [Suspect]
     Active Substance: THALIDOMIDE
     Indication: Plasma cell myeloma
     Dosage: 100 MILLIGRAM, ONCE A DAY (100 MG, PER DAY)
     Route: 065
     Dates: start: 201801, end: 201812
  20. THALIDOMIDE [Suspect]
     Active Substance: THALIDOMIDE
     Indication: Disease progression
  21. TELMISARTAN [Suspect]
     Active Substance: TELMISARTAN
     Indication: Product used for unknown indication
     Dosage: UNK
     Route: 065
  22. ZOLEDRONIC ACID [Suspect]
     Active Substance: ZOLEDRONIC ACID
     Indication: Product used for unknown indication
     Dosage: UNK
     Route: 065
     Dates: start: 201702
  23. INSULIN NOS [Concomitant]
     Active Substance: INSULIN NOS
     Indication: Hyperglycaemia
     Dosage: UNK
     Route: 065

REACTIONS (7)
  - Plasma cell myeloma [Unknown]
  - Hypogammaglobulinaemia [Unknown]
  - Upper respiratory tract infection [Unknown]
  - Polyneuropathy [Unknown]
  - Pneumonia [Unknown]
  - Pharyngitis [Unknown]
  - Hyperglycaemia [Unknown]
